FAERS Safety Report 23184917 (Version 1)
Quarter: 2023Q4

REPORT INFORMATION
  Report Type: Spontaneous
  Country: US (occurrence: US)
  Receive Date: 20231115
  Receipt Date: 20231115
  Transmission Date: 20240110
  Serious: Yes (Other)
  Sender: FDA-Public Use
  Company Number: US-drreddys-LIT/USA/23/0183387

PATIENT
  Age: 33 Year
  Sex: Male

DRUGS (26)
  1. CHLORPROMAZINE [Suspect]
     Active Substance: CHLORPROMAZINE
     Indication: Mania
     Route: 030
  2. CHLORPROMAZINE [Suspect]
     Active Substance: CHLORPROMAZINE
     Indication: Agitation
  3. DIAZEPAM [Suspect]
     Active Substance: DIAZEPAM
     Indication: Mania
     Dosage: 3 DOSES OF 10MG
     Route: 042
  4. DIAZEPAM [Suspect]
     Active Substance: DIAZEPAM
     Dosage: 2 DOSES OF 5MG
     Route: 042
  5. LORAZEPAM [Suspect]
     Active Substance: LORAZEPAM
     Indication: Mania
     Dosage: 9 DOSES OF IV
  6. LORAZEPAM [Suspect]
     Active Substance: LORAZEPAM
     Indication: Agitation
     Dosage: WITH AN ADDITIONAL 3MG EVERY 6 HOURS AS NEEDED
  7. LORAZEPAM [Suspect]
     Active Substance: LORAZEPAM
  8. LORAZEPAM [Suspect]
     Active Substance: LORAZEPAM
     Dosage: ADDITIONAL 3MG EVERY 6 HOURS AS NEEDED
  9. LORAZEPAM [Suspect]
     Active Substance: LORAZEPAM
  10. ZIPRASIDONE [Suspect]
     Active Substance: ZIPRASIDONE
     Indication: Mania
  11. RISPERIDONE [Suspect]
     Active Substance: RISPERIDONE
     Indication: Mania
  12. VANCOMYCIN [Concomitant]
     Active Substance: VANCOMYCIN
     Indication: Product used for unknown indication
  13. QUETIAPINE [Concomitant]
     Active Substance: QUETIAPINE
     Indication: Mania
     Route: 048
  14. benzatropine [benztropine] [Concomitant]
     Indication: Product used for unknown indication
  15. GABAPENTIN [Concomitant]
     Active Substance: GABAPENTIN
     Indication: Product used for unknown indication
  16. FLUOXETINE [Concomitant]
     Active Substance: FLUOXETINE HYDROCHLORIDE
     Indication: Product used for unknown indication
  17. BUPRENORPHINE [Concomitant]
     Active Substance: BUPRENORPHINE
     Indication: Drug dependence
  18. ALPRAZOLAM [Concomitant]
     Active Substance: ALPRAZOLAM
     Indication: Drug abuse
     Dosage: 4?14MG DAILY
  19. CHLORDIAZEPOXIDE [Concomitant]
     Active Substance: CHLORDIAZEPOXIDE
     Indication: Product used for unknown indication
  20. HYDROXYZINE HYDROCHLORIDE [Concomitant]
     Active Substance: HYDROXYZINE HYDROCHLORIDE
     Indication: Product used for unknown indication
  21. CLONIDINE [Concomitant]
     Active Substance: CLONIDINE
     Indication: Product used for unknown indication
  22. DEXMEDETOMIDINE [Concomitant]
     Active Substance: DEXMEDETOMIDINE
     Indication: Product used for unknown indication
  23. THIAMINE HYDROCHLORIDE [Concomitant]
     Active Substance: THIAMINE HYDROCHLORIDE
     Indication: Product used for unknown indication
  24. FOLIC ACID [Concomitant]
     Active Substance: FOLIC ACID
     Indication: Product used for unknown indication
  25. VALPROATE [Concomitant]
     Active Substance: VALPROIC ACID
     Indication: Mania
  26. LITHIUM [Concomitant]
     Active Substance: LITHIUM
     Indication: Product used for unknown indication

REACTIONS (4)
  - Dysarthria [Unknown]
  - Abscess [Unknown]
  - Lethargy [Unknown]
  - Drug ineffective [Unknown]
